FAERS Safety Report 15386162 (Version 1)
Quarter: 2018Q3

REPORT INFORMATION
  Report Type: Report from Study
  Country: TW (occurrence: TW)
  Receive Date: 20180914
  Receipt Date: 20180914
  Transmission Date: 20181010
  Serious: Yes (Other)
  Sender: FDA-Public Use
  Company Number: TW-ELI_LILLY_AND_COMPANY-TW201803013727

PATIENT
  Age: 59 Year
  Sex: Female

DRUGS (1)
  1. CETUXIMAB. [Suspect]
     Active Substance: CETUXIMAB
     Indication: COLORECTAL CANCER METASTATIC
     Dosage: 500 MG/M2 (780 MG), 2/M
     Route: 041
     Dates: start: 20180310

REACTIONS (4)
  - Macular degeneration [Unknown]
  - Off label use [Unknown]
  - Conjunctivitis allergic [Unknown]
  - Cataract [Unknown]

NARRATIVE: CASE EVENT DATE: 2018
